FAERS Safety Report 4496997-4 (Version None)
Quarter: 2004Q4

REPORT INFORMATION
  Report Type: 
  Country: None (occurrence: None)
  Receive Date: 20040928
  Receipt Date: 20040727
  Transmission Date: 20050328
  Serious: No
  Sender: FDA-Public Use
  Company Number: 04P-163-0268142-00

PATIENT
  Age: 28 Year
  Sex: Female
  Weight: 88.4514 kg

DRUGS (10)
  1. HUMIRA [Suspect]
     Indication: RHEUMATOID ARTHRITIS
     Dosage: 40 MG, 1 IN 2 WK, SUBCUTANEOUS
     Route: 058
     Dates: start: 20030701
  2. EFFEXOR XR [Concomitant]
  3. ZIPRASIDONE HYDROCHLORIDE [Concomitant]
  4. LEXAPRO [Concomitant]
  5. TRILEPTAL [Concomitant]
  6. SEROQUAL [Concomitant]
  7. PREDNISONE [Concomitant]
  8. BUCINDOLOL HYDROCHLORIDE [Concomitant]
  9. VICODIN [Concomitant]
  10. MULTI-VITAMINS [Concomitant]

REACTIONS (3)
  - INJECTION SITE ERYTHEMA [None]
  - INJECTION SITE MASS [None]
  - INJECTION SITE PRURITUS [None]
